FAERS Safety Report 25767001 (Version 1)
Quarter: 2025Q3

REPORT INFORMATION
  Report Type: Report from Study
  Country: CA (occurrence: CA)
  Receive Date: 20250905
  Receipt Date: 20250905
  Transmission Date: 20251021
  Serious: Yes (Other)
  Sender: CELLTRION
  Company Number: CA-CELLTRION INC.-2025CA031397

PATIENT

DRUGS (1)
  1. OMALIZUMAB [Suspect]
     Active Substance: OMALIZUMAB
     Indication: Asthma
     Dosage: 225.0 MILLIGRAM, 1 EVERY 2 WEEKS
     Route: 058

REACTIONS (4)
  - Ankle fracture [Unknown]
  - Hot flush [Unknown]
  - Pneumonia [Unknown]
  - Joint swelling [Unknown]
